FAERS Safety Report 8370919-8 (Version None)
Quarter: 2012Q2

REPORT INFORMATION
  Report Type: 
  Country: None (occurrence: None)
  Receive Date: 20120518
  Receipt Date: 20120229
  Transmission Date: 20120825
  Serious: No
  Sender: FDA-Public Use
  Company Number: US-BAUSCH-2012BL001446

PATIENT
  Age: 79 Year
  Sex: Female

DRUGS (3)
  1. NASAL SALINE [Concomitant]
     Route: 049
  2. IPRATROPIUM BROMIDE [Suspect]
     Indication: SINUSITIS
     Route: 049
     Dates: start: 20120224, end: 20120225
  3. AZITHROMYCIN [Concomitant]
     Indication: ANTIBIOTIC THERAPY
     Route: 048

REACTIONS (1)
  - EPISTAXIS [None]
